FAERS Safety Report 8831376 (Version 1)
Quarter: 2012Q4

REPORT INFORMATION
  Report Type: 
  Country: BR (occurrence: BR)
  Receive Date: 20121009
  Receipt Date: 20121009
  Transmission Date: 20130627
  Serious: Yes (Other)
  Sender: FDA-Public Use
  Company Number: BR-SANOFI-AVENTIS-2012SA071700

PATIENT
  Age: 59 Year
  Sex: Female
  Weight: 65 kg

DRUGS (6)
  1. LANTUS [Suspect]
     Indication: DIABETES
     Route: 058
  2. CLIKSTAR [Concomitant]
     Indication: DEVICE THERAPY
  3. ATENOLOL [Concomitant]
     Indication: HYPERTENSION
     Route: 048
  4. ENALAPRIL MALEATE [Concomitant]
     Indication: HYPERTENSION
     Route: 048
  5. SIMVASTATIN [Concomitant]
     Indication: CHOLESTEROL
     Route: 048
  6. HUMALOG [Concomitant]
     Indication: DIABETES
     Dosage: dosage: According to glycaemia

REACTIONS (6)
  - Lower limb fracture [Not Recovered/Not Resolved]
  - Pain in extremity [Not Recovered/Not Resolved]
  - Weight increased [Unknown]
  - Injection site pain [Unknown]
  - Hyperglycaemia [Unknown]
  - Hypoglycaemia [Unknown]
